FAERS Safety Report 6457558-0 (Version None)
Quarter: 2009Q4

REPORT INFORMATION
  Report Type: 
  Country: None (occurrence: None)
  Receive Date: 20091125
  Receipt Date: 20091119
  Transmission Date: 20100525
  Serious: Yes (Other)
  Sender: FDA-Public Use
  Company Number: PHHY2009DE50896

PATIENT
  Sex: Female
  Weight: 89 kg

DRUGS (4)
  1. CGS 20267 T30748+ [Suspect]
     Indication: BREAST CANCER
     Dosage: 2.5 MG, DAILY
     Route: 048
     Dates: start: 20081115
  2. HERCEPTIN [Concomitant]
     Dosage: 8 MG/KG, Q21D
     Dates: start: 20080702, end: 20080903
  3. HERCEPTIN [Concomitant]
     Dosage: UNK
     Dates: start: 20081119, end: 20091119
  4. GLUCOSAMINE [Concomitant]
     Dosage: UNK
     Dates: start: 20040601

REACTIONS (2)
  - BONE PAIN [None]
  - NEUROPATHY PERIPHERAL [None]
